FAERS Safety Report 21064240 (Version 1)
Quarter: 2022Q3

REPORT INFORMATION
  Report Type: Spontaneous
  Country: IT (occurrence: IT)
  Receive Date: 20220711
  Receipt Date: 20220711
  Transmission Date: 20221027
  Serious: Yes (Hospitalization, Other)
  Sender: FDA-Public Use
  Company Number: IT-ALVOGEN-2022-ALVOGEN-120614

PATIENT
  Sex: Female
  Weight: 3.31 kg

DRUGS (2)
  1. LEVOTHYROXINE [Suspect]
     Active Substance: LEVOTHYROXINE
     Indication: Basedow^s disease
     Route: 064
  2. METHIMAZOLE [Suspect]
     Active Substance: METHIMAZOLE
     Indication: Basedow^s disease
     Route: 064

REACTIONS (2)
  - Neonatal thyrotoxicosis [Recovered/Resolved]
  - Foetal exposure during pregnancy [Unknown]
